FAERS Safety Report 6006588-1 (Version None)
Quarter: 2008Q4

REPORT INFORMATION
  Report Type: 
  Country: None (occurrence: None)
  Receive Date: 20081217
  Receipt Date: 20081205
  Transmission Date: 20090506
  Serious: Yes (Death)
  Sender: FDA-Public Use
  Company Number: MX-ROCHE-601618

PATIENT
  Sex: Female
  Weight: 68 kg

DRUGS (2)
  1. BONIVA [Suspect]
     Indication: OSTEOPOROSIS
     Route: 048
     Dates: start: 20060327, end: 20080827
  2. COAPROVEL [Concomitant]
     Indication: HYPERTENSION
     Dosage: DOSE: HALF DAILY; DRUG REPORTED AS CO-APROVEL
     Route: 048
     Dates: start: 20020101, end: 20080801

REACTIONS (1)
  - MALIGNANT NEOPLASM OF AMPULLA OF VATER [None]
